FAERS Safety Report 6733003-2 (Version None)
Quarter: 2010Q2

REPORT INFORMATION
  Report Type: 
  Country: None (occurrence: None)
  Receive Date: 20100514
  Receipt Date: 20100429
  Transmission Date: 20101027
  Serious: Yes (Hospitalization, Disabling)
  Sender: FDA-Public Use
  Company Number: DSA_43094_2010

PATIENT
  Age: 85 Year
  Sex: Male

DRUGS (6)
  1. VASOTEC [Suspect]
     Indication: CARDIAC FAILURE
     Dosage: (20 MG BID ORAL)
     Route: 048
  2. ALDACTONE [Suspect]
     Indication: CARDIAC FAILURE
     Dosage: (25 MG QD ORAL)
     Route: 048
  3. AMLOPIN /00972402/ [Concomitant]
  4. CORYOL [Concomitant]
  5. ZOCOR [Concomitant]
  6. ASPIRIN [Concomitant]

REACTIONS (4)
  - ABASIA [None]
  - DYSPNOEA EXERTIONAL [None]
  - HYPERKALAEMIA [None]
  - PAIN IN EXTREMITY [None]
